FAERS Safety Report 6010175-9 (Version None)
Quarter: 2008Q4

REPORT INFORMATION
  Report Type: 
  Country: None (occurrence: None)
  Receive Date: 20081218
  Receipt Date: 20081211
  Transmission Date: 20090506
  Serious: Yes (Hospitalization)
  Sender: FDA-Public Use
  Company Number: NO-BRISTOL-MYERS SQUIBB COMPANY-14439657

PATIENT
  Age: 28 Year
  Sex: Male

DRUGS (1)
  1. MYCOSTATIN [Suspect]
     Indication: CANDIDIASIS
     Route: 048

REACTIONS (1)
  - GASTROINTESTINAL DISORDER [None]
